FAERS Safety Report 10528281 (Version 1)
Quarter: 2014Q4

REPORT INFORMATION
  Report Type: Spontaneous
  Country: US (occurrence: None)
  Receive Date: 20141017
  Receipt Date: 20141017
  Transmission Date: 20150528
  Serious: Yes (Other)
  Sender: FDA-Public Use
  Company Number: None

PATIENT
  Age: 40 Year
  Sex: Male

DRUGS (1)
  1. LEVOFLOXACIN. [Suspect]
     Active Substance: LEVOFLOXACIN
     Indication: BACTERIAL PROSTATITIS
     Dosage: 1, ONCE DAILY, TAKEN BY MOUTH
     Dates: start: 20140602, end: 20140714

REACTIONS (2)
  - Tendon rupture [None]
  - Toxicity to various agents [None]

NARRATIVE: CASE EVENT DATE: 20140902
